FAERS Safety Report 23962533 (Version 1)
Quarter: 2024Q2

REPORT INFORMATION
  Report Type: Spontaneous
  Country: US (occurrence: None)
  Receive Date: 20240610
  Receipt Date: 20240610
  Transmission Date: 20240716
  Serious: Yes (Other)
  Sender: FDA-Public Use
  Company Number: None

PATIENT
  Age: 73 Year
  Sex: Female
  Weight: 76.5 kg

DRUGS (10)
  1. REVLIMID [Suspect]
     Active Substance: LENALIDOMIDE
     Indication: Myelodysplastic syndrome
     Dosage: 10 MG DAILY ORAL?
     Route: 048
     Dates: start: 20240513, end: 20240606
  2. B 12 tablet [Concomitant]
     Dates: start: 20240513
  3. Calcium 600 mg tablet [Concomitant]
     Dates: start: 20240513
  4. FOLIC ACID [Concomitant]
     Active Substance: FOLIC ACID
     Dates: start: 20240513
  5. GLIPIZIDE [Concomitant]
     Active Substance: GLIPIZIDE
     Dates: start: 20240513
  6. Ozempic 2mg/1.5mL [Concomitant]
     Dates: start: 20240513
  7. VITAMIN C [Concomitant]
     Active Substance: ASCORBIC ACID
     Dates: start: 20240513
  8. ZOLPIDEM [Concomitant]
     Active Substance: ZOLPIDEM TARTRATE
     Dates: start: 20240513
  9. Vitamin C 500mg [Concomitant]
     Dates: start: 20240513
  10. Benadryl 25mg [Concomitant]
     Dates: start: 20240513

REACTIONS (1)
  - Thrombocytopenia [None]

NARRATIVE: CASE EVENT DATE: 20240606
